FAERS Safety Report 24743711 (Version 1)
Quarter: 2024Q4

REPORT INFORMATION
  Report Type: Spontaneous
  Country: FR (occurrence: FR)
  Receive Date: 20241217
  Receipt Date: 20241217
  Transmission Date: 20250115
  Serious: Yes (Other)
  Sender: RANBAXY
  Company Number: FR-AFSSAPS-PC2024000880

PATIENT
  Age: 70 Year
  Sex: Female

DRUGS (4)
  1. NOREPINEPHRINE [Suspect]
     Active Substance: NOREPINEPHRINE\NOREPINEPHRINE BITARTRATE
     Indication: Product used for unknown indication
     Dosage: UNK
     Route: 040
     Dates: start: 20241014, end: 20241018
  2. ENOXAPARIN [Suspect]
     Active Substance: ENOXAPARIN
     Indication: Rest regimen
     Dosage: UNK
     Route: 065
     Dates: start: 20241009, end: 20241023
  3. CEFEPIME [Suspect]
     Active Substance: CEFEPIME HYDROCHLORIDE
     Indication: Septic shock
     Dosage: UNK
     Route: 065
     Dates: start: 20241016, end: 20241021
  4. VANCOMYCIN [Suspect]
     Active Substance: VANCOMYCIN
     Indication: Product used for unknown indication
     Dosage: UNK
     Route: 065
     Dates: start: 20241011, end: 20241018

REACTIONS (1)
  - Eosinophilia [Not Recovered/Not Resolved]

NARRATIVE: CASE EVENT DATE: 20241018
